FAERS Safety Report 18910940 (Version 2)
Quarter: 2021Q3

REPORT INFORMATION
  Report Type: Other
  Country: CA (occurrence: CA)
  Receive Date: 20210218
  Receipt Date: 20210805
  Transmission Date: 20211014
  Serious: No
  Sender: FDA-Public Use
  Company Number: CA-LUPIN PHARMACEUTICALS INC.-2021-01883

PATIENT
  Age: 24 Year
  Sex: Female
  Weight: 117 kg

DRUGS (1)
  1. JENCYCLA [Suspect]
     Active Substance: NORETHINDRONE
     Indication: CONTRACEPTION
     Dosage: 1.0 DOSAGE FORM, QD
     Route: 048

REACTIONS (3)
  - Dizziness [Unknown]
  - Abdominal pain upper [Unknown]
  - Headache [Unknown]
